FAERS Safety Report 7446057-5 (Version None)
Quarter: 2011Q2

REPORT INFORMATION
  Report Type: 
  Country: None (occurrence: None)
  Receive Date: 20110429
  Receipt Date: 20110421
  Transmission Date: 20111010
  Serious: Yes (Congenital Anomaly, Other)
  Sender: FDA-Public Use
  Company Number: US-PFIZER INC-2011077307

PATIENT

DRUGS (4)
  1. SEROQUEL [Concomitant]
     Dosage: UNK
     Route: 064
  2. HYDROCODONE [Concomitant]
     Indication: ARTHRITIS
     Dosage: UNK
     Route: 064
  3. ZOLOFT [Suspect]
     Dosage: UNK
     Route: 064
  4. REVIA [Concomitant]
     Dosage: 25 MG, 2X/DAY
     Route: 064
     Dates: start: 20011030, end: 20020108

REACTIONS (2)
  - DRUG EXPOSURE DURING PREGNANCY [None]
  - CONGENITAL ANOMALY [None]
